FAERS Safety Report 20328458 (Version 1)
Quarter: 2022Q1

REPORT INFORMATION
  Report Type: Spontaneous
  Country: US (occurrence: None)
  Receive Date: 20220112
  Receipt Date: 20220112
  Transmission Date: 20220423
  Serious: Yes (unspecified)
  Sender: FDA-Public Use
  Company Number: None

PATIENT
  Age: 66 Year
  Sex: Male
  Weight: 61.64 kg

DRUGS (1)
  1. SOTROVIMAB [Suspect]
     Active Substance: SOTROVIMAB
     Indication: COVID-19
     Dosage: FREQUENCY : ONCE;?
     Route: 042
     Dates: start: 20220106, end: 20220106

REACTIONS (10)
  - Pain in extremity [None]
  - Feeling hot [None]
  - Paraesthesia [None]
  - Restless legs syndrome [None]
  - Headache [None]
  - Throat irritation [None]
  - Flushing [None]
  - Pruritus [None]
  - Oropharyngeal discomfort [None]
  - Infusion related reaction [None]

NARRATIVE: CASE EVENT DATE: 20220106
